FAERS Safety Report 23581389 (Version 1)
Quarter: 2024Q1

REPORT INFORMATION
  Report Type: Spontaneous
  Country: FR (occurrence: FR)
  Receive Date: 20240229
  Receipt Date: 20240229
  Transmission Date: 20240409
  Serious: Yes (Hospitalization, Other)
  Sender: FDA-Public Use
  Company Number: None

PATIENT
  Age: 65 Year
  Sex: Male
  Weight: 76 kg

DRUGS (5)
  1. ELIQUIS [Suspect]
     Active Substance: APIXABAN
     Indication: Peripheral artery thrombosis
     Dosage: 2.5 MG, 2X/DAY (FREQ: 12 H)
     Route: 048
     Dates: end: 20240109
  2. ELIQUIS [Suspect]
     Active Substance: APIXABAN
     Dosage: 5 MG, 2X/DAY (FREQ: 12 H)
     Route: 048
     Dates: start: 20240110
  3. LORLATINIB [Suspect]
     Active Substance: LORLATINIB
     Indication: Non-small cell lung cancer metastatic
     Dosage: 1 DF, 1X/DAY
     Route: 048
  4. TADALAFIL [Suspect]
     Active Substance: TADALAFIL
     Dosage: 5 MG 1 DAY OUT OF 2
     Route: 048
     Dates: end: 20240116
  5. REPATHA [Suspect]
     Active Substance: EVOLOCUMAB
     Indication: Hypercholesterolaemia
     Dosage: 140 MG, CYCLIC (FREQ: 15 DAY)
     Route: 058
     Dates: start: 20231002

REACTIONS (2)
  - Peripheral ischaemia [Recovering/Resolving]
  - Off label use [Unknown]

NARRATIVE: CASE EVENT DATE: 20240111
